FAERS Safety Report 7206082-6 (Version None)
Quarter: 2010Q4

REPORT INFORMATION
  Report Type: 
  Country: None (occurrence: None)
  Receive Date: 20101229
  Receipt Date: 20101229
  Transmission Date: 20110411
  Serious: Yes (Life-Threatening, Hospitalization, Disabling)
  Sender: FDA-Public Use
  Company Number: None

PATIENT
  Sex: Female
  Weight: 67.1324 kg

DRUGS (1)
  1. ROCALTROL [Suspect]
     Indication: OSTEOPOROSIS
     Dosage: ONE TIME A DAY PO
     Route: 048
     Dates: start: 19910319, end: 19921228

REACTIONS (3)
  - ABASIA [None]
  - INCOHERENT [None]
  - NEPHROCALCINOSIS [None]
